FAERS Safety Report 12717519 (Version 1)
Quarter: 2016Q3

REPORT INFORMATION
  Report Type: Spontaneous
  Country: US (occurrence: US)
  Receive Date: 20160906
  Receipt Date: 20160906
  Transmission Date: 20161109
  Serious: No
  Sender: FDA-Public Use
  Company Number: US-AMNEAL PHARMACEUTICALS-2016AMN00254

PATIENT
  Sex: Male

DRUGS (3)
  1. GABAPENTIN. [Suspect]
     Active Substance: GABAPENTIN
     Indication: NERVE COMPRESSION
  2. LYRICA [Concomitant]
     Active Substance: PREGABALIN
     Indication: NERVE COMPRESSION
     Route: 048
  3. GABAPENTIN. [Suspect]
     Active Substance: GABAPENTIN
     Indication: NERVE COMPRESSION
     Route: 048

REACTIONS (5)
  - Abdominal discomfort [Unknown]
  - Paraesthesia [Unknown]
  - Pain in extremity [Unknown]
  - Drug ineffective [Not Recovered/Not Resolved]
  - Abdominal pain upper [Unknown]
